FAERS Safety Report 23799941 (Version 2)
Quarter: 2024Q2

REPORT INFORMATION
  Report Type: Spontaneous
  Country: IE (occurrence: IE)
  Receive Date: 20240430
  Receipt Date: 20240521
  Transmission Date: 20240716
  Serious: Yes (Disabling, Other)
  Sender: FDA-Public Use
  Company Number: None

PATIENT
  Age: 40 Year
  Sex: Female
  Weight: 72.64 kg

DRUGS (2)
  1. CYMBALTA [Suspect]
     Active Substance: DULOXETINE HYDROCHLORIDE
     Indication: Depression
     Dosage: 30 MG, UNKNOWN
     Route: 048
     Dates: start: 20171001, end: 20230820
  2. CYMBALTA [Suspect]
     Active Substance: DULOXETINE HYDROCHLORIDE
     Indication: Fibromyalgia

REACTIONS (13)
  - Bedridden [Recovered/Resolved]
  - Impaired driving ability [Recovered/Resolved]
  - Impaired work ability [Recovered/Resolved]
  - Product dose omission issue [Recovered/Resolved]
  - Electric shock sensation [Recovered/Resolved]
  - Withdrawal syndrome [Recovering/Resolving]
  - Malaise [Recovered/Resolved]
  - Anxiety [Recovered/Resolved]
  - Fatigue [Recovering/Resolving]
  - Headache [Recovered/Resolved]
  - Nausea [Recovered/Resolved]
  - Vertigo [Recovering/Resolving]
  - Dizziness [Recovered/Resolved]

NARRATIVE: CASE EVENT DATE: 20180910
